FAERS Safety Report 5068410-X (Version None)
Quarter: 2006Q3

REPORT INFORMATION
  Report Type: 
  Country: None (occurrence: None)
  Receive Date: 20060720
  Receipt Date: 20060706
  Transmission Date: 20061208
  Serious: Yes (Other)
  Sender: FDA-Public Use
  Company Number: 2006BH011831

PATIENT
  Age: 3 Month
  Sex: 0

DRUGS (2)
  1. IVEEGAM [Suspect]
     Indication: KAWASAKI'S DISEASE
  2. REMICADE [Concomitant]

REACTIONS (1)
  - THERAPY NON-RESPONDER [None]
